FAERS Safety Report 5190213-6 (Version None)
Quarter: 2006Q4

REPORT INFORMATION
  Report Type: 
  Country: None (occurrence: None)
  Receive Date: 20061222
  Receipt Date: 20060915
  Transmission Date: 20070319
  Serious: No
  Sender: FDA-Public Use
  Company Number: US-AMGEN-KDL193636

PATIENT
  Sex: Female

DRUGS (3)
  1. ARANESP [Suspect]
     Indication: RENAL FAILURE CHRONIC
     Route: 058
     Dates: start: 20060901
  2. INSULIN [Concomitant]
  3. UNSPECIFIED MEDICATION [Concomitant]

REACTIONS (4)
  - DYSURIA [None]
  - INSOMNIA [None]
  - PALPITATIONS [None]
  - POLLAKIURIA [None]
